FAERS Safety Report 8385772-6 (Version None)
Quarter: 2012Q2

REPORT INFORMATION
  Report Type: 
  Country: None (occurrence: None)
  Receive Date: 20120523
  Receipt Date: 20120510
  Transmission Date: 20120825
  Serious: Yes (Hospitalization)
  Sender: FDA-Public Use
  Company Number: 2012SP025259

PATIENT
  Age: 30 Year
  Sex: Male

DRUGS (4)
  1. ESCITALOPRAM [Suspect]
     Indication: PRODUCT USED FOR UNKNOWN INDICATION
     Dosage: 20 DF;ONCE;PO
     Route: 048
     Dates: start: 20120122, end: 20120122
  2. REMERON [Suspect]
     Indication: PRODUCT USED FOR UNKNOWN INDICATION
     Dosage: 20 DF;ONCE;PO
     Route: 048
     Dates: start: 20120122, end: 20120122
  3. LEVETIRACETAM [Suspect]
     Indication: PRODUCT USED FOR UNKNOWN INDICATION
     Dosage: 10 DF;ONCE;PO
     Route: 048
     Dates: start: 20120122, end: 20120122
  4. METHYLPHENIDATE HCL [Suspect]
     Indication: PRODUCT USED FOR UNKNOWN INDICATION
     Dosage: 8 DF;ONCE;PO
     Route: 048
     Dates: start: 20120122, end: 20120122

REACTIONS (8)
  - MULTIPLE DRUG OVERDOSE INTENTIONAL [None]
  - HEADACHE [None]
  - VOMITING [None]
  - EXTRAPYRAMIDAL DISORDER [None]
  - SLUGGISHNESS [None]
  - SOMNOLENCE [None]
  - SUICIDE ATTEMPT [None]
  - HALLUCINATION [None]
